FAERS Safety Report 24460740 (Version 1)
Quarter: 2024Q4

REPORT INFORMATION
  Report Type: Report from Study
  Country: US (occurrence: US)
  Receive Date: 20241018
  Receipt Date: 20241018
  Transmission Date: 20250114
  Serious: No
  Sender: ROCHE
  Company Number: US-ROCHE-3553529

PATIENT
  Age: 65 Year
  Sex: Female

DRUGS (10)
  1. RITUXAN [Suspect]
     Active Substance: RITUXIMAB
     Indication: Immune thrombocytopenia
     Dosage: EVERY 6 MONTHS DATE OF SERVICE: 22/NOV/2023, 29/NOV/2023, 06/DEC/2023, 13/DEC/2023
     Route: 041
  2. RITUXAN [Suspect]
     Active Substance: RITUXIMAB
     Indication: Connective tissue disorder
  3. AMLODIPINE [Concomitant]
     Active Substance: AMLODIPINE BESYLATE
  4. AZATHIOPRINE [Concomitant]
     Active Substance: AZATHIOPRINE
  5. CHOLECALCIFEROL [Concomitant]
     Active Substance: CHOLECALCIFEROL
  6. ESTRADIOL [Concomitant]
     Active Substance: ESTRADIOL
  7. MELATONIN [Concomitant]
     Active Substance: MELATONIN
  8. LEVOTHYROXINE [Concomitant]
     Active Substance: LEVOTHYROXINE
  9. ROSUVASTATIN [Concomitant]
     Active Substance: ROSUVASTATIN
  10. MOMETASONE [Concomitant]
     Active Substance: MOMETASONE

REACTIONS (2)
  - Off label use [Unknown]
  - No adverse event [Unknown]
